FAERS Safety Report 10084922 (Version 1)
Quarter: 2014Q2

REPORT INFORMATION
  Report Type: Spontaneous
  Country: US (occurrence: None)
  Receive Date: 20140404
  Receipt Date: 20140404
  Transmission Date: 20141212
  Serious: Yes (Hospitalization)
  Sender: FDA-Public Use
  Company Number: 1356095

PATIENT
  Age: 79 Year
  Sex: Female
  Weight: 78.29 kg

DRUGS (4)
  1. PERJETA [Suspect]
     Indication: BREAST CANCER
     Route: 042
     Dates: start: 20131120
  2. HERCEPTIN (TRASTUZUMAB) [Suspect]
     Indication: BREAST CANCER
  3. TAXOTERE (DOCETAXEL) [Concomitant]
  4. CARBOPLATIN (CARBOPLATIN) [Concomitant]

REACTIONS (1)
  - Diarrhoea [None]
